FAERS Safety Report 4527591-4 (Version None)
Quarter: 2004Q4

REPORT INFORMATION
  Report Type: 
  Country: None (occurrence: None)
  Receive Date: 20041130
  Receipt Date: 20041004
  Transmission Date: 20050328
  Serious: No
  Sender: FDA-Public Use
  Company Number: WAES 0410USA00606

PATIENT
  Age: 63 Year
  Sex: Female

DRUGS (7)
  1. ZETIA [Suspect]
     Indication: BLOOD CHOLESTEROL INCREASED
     Dosage: PO
     Route: 048
     Dates: start: 20040701
  2. BAYCOL [Concomitant]
  3. BEXTRA [Concomitant]
  4. NIASPAN [Concomitant]
  5. ZESTRIL [Concomitant]
  6. HYDROCORTISONE [Concomitant]
  7. MULTIVITAMIN [Concomitant]

REACTIONS (2)
  - PRURITUS [None]
  - SKIN DISCOLOURATION [None]
